FAERS Safety Report 8266679-1 (Version None)
Quarter: 2012Q2

REPORT INFORMATION
  Report Type: 
  Country: None (occurrence: None)
  Receive Date: 20120408
  Receipt Date: 20120328
  Transmission Date: 20120825
  Serious: Yes (Other)
  Sender: FDA-Public Use
  Company Number: JP-BRISTOL-MYERS SQUIBB COMPANY-16458838

PATIENT
  Age: 70 Year
  Sex: Female
  Weight: 45 kg

DRUGS (17)
  1. AZUNOL [Concomitant]
     Indication: INFECTION PROPHYLAXIS
     Route: 061
     Dates: start: 20120124
  2. MYSER [Concomitant]
     Indication: ACNE
     Dosage: 3 IN 1 AS NECESSARY
     Route: 062
     Dates: start: 20120126
  3. MAGNESIUM SULFATE [Concomitant]
     Indication: CONSTIPATION
     Route: 048
     Dates: start: 20120204
  4. ALFACALCIDOL [Concomitant]
     Indication: OSTEOPOROSIS
     Route: 048
     Dates: start: 20120216
  5. CETUXIMAB [Suspect]
     Indication: GASTRIC CANCER
     Dosage: 5MG/ML INTRAVENOUS INFUSION,17JAN12-17JAN12(400MG/M2) 25JAN12-23FEB12(250 MG/M2 29DYS)
     Route: 042
     Dates: start: 20120117, end: 20120223
  6. TS-1 [Suspect]
     Indication: GASTRIC CANCER
     Dosage: CAPS,44 DAYS 17JAN12-17JAN12 23FEB12-1MAR12(7DYS)
     Route: 048
     Dates: start: 20120117, end: 20120301
  7. LANSOPRAZOLE [Concomitant]
     Indication: GASTRIC CANCER
     Route: 048
     Dates: start: 20111217
  8. MENATETRENONE [Concomitant]
     Indication: OSTEOPOROSIS
     Dosage: 1DF:1 CAP
     Route: 048
     Dates: start: 20120216
  9. CISPLATIN [Suspect]
     Indication: GASTRIC CANCER
     Dosage: D8, MOST RECENT ADMINISTRATION 27JAN12, DOSE:60MG/M2
     Route: 042
     Dates: start: 20120125, end: 20120125
  10. SENNA [Concomitant]
     Indication: CONSTIPATION
     Dosage: TAB
     Route: 048
     Dates: start: 20120111
  11. HIRUDOID [Concomitant]
     Indication: ACNE
     Dosage: 3 IN 1 AS NECESSARY
     Route: 062
     Dates: start: 20120125
  12. HALOPERIDOL [Concomitant]
     Indication: INSOMNIA
     Dosage: TAB
     Route: 048
     Dates: start: 20120205
  13. BETAMETHASONE [Concomitant]
     Indication: ACNE
     Dates: start: 20120204
  14. AMLODIPINE [Concomitant]
     Indication: HYPERTENSION
     Route: 048
     Dates: start: 20040101
  15. RINDERON-VG [Concomitant]
     Indication: ACNE
     Dosage: 3 IN 1 AS NECESSARY
     Route: 062
     Dates: start: 20120204
  16. INDOMETHACIN [Concomitant]
     Indication: CONTUSION
     Dosage: 3 IN 1 AS NECESSARY
     Route: 062
     Dates: start: 20120201
  17. GENTAMICIN SULFATE [Concomitant]
     Indication: CONTUSION
     Dosage: 3 IN 1 AS NECESSARY
     Route: 062
     Dates: start: 20120221

REACTIONS (1)
  - SOFT TISSUE NECROSIS [None]
